FAERS Safety Report 8485985-9 (Version None)
Quarter: 2012Q3

REPORT INFORMATION
  Report Type: 
  Country: None (occurrence: None)
  Receive Date: 20120703
  Receipt Date: 20120626
  Transmission Date: 20120928
  Serious: Yes (Death)
  Sender: FDA-Public Use
  Company Number: AT-ASTRAZENECA-2012SE41290

PATIENT

DRUGS (2)
  1. BUPIVACAINE HCL [Suspect]
     Route: 051
  2. METOPROLOL TARTRATE [Suspect]
     Route: 042

REACTIONS (1)
  - CIRCUMSTANCE OR INFORMATION CAPABLE OF LEADING TO MEDICATION ERROR [None]
